FAERS Safety Report 8448839-X (Version None)
Quarter: 2012Q2

REPORT INFORMATION
  Report Type: 
  Country: None (occurrence: None)
  Receive Date: 20120619
  Receipt Date: 20120607
  Transmission Date: 20120825
  Serious: No
  Sender: FDA-Public Use
  Company Number: US-ASTRAZENECA-2012SE38212

PATIENT
  Sex: Female

DRUGS (1)
  1. NEXIUM [Suspect]
     Indication: GASTROENTERITIS ESCHERICHIA COLI
     Route: 048

REACTIONS (2)
  - OFF LABEL USE [None]
  - INFLUENZA [None]
